FAERS Safety Report 5578984-8 (Version None)
Quarter: 2007Q4

REPORT INFORMATION
  Report Type: 
  Country: None (occurrence: None)
  Receive Date: 20071228
  Receipt Date: 20071220
  Transmission Date: 20080405
  Serious: Yes (Hospitalization)
  Sender: FDA-Public Use
  Company Number: 163-21880-07121256

PATIENT
  Age: 71 Year
  Sex: Male

DRUGS (3)
  1. REVLIMID [Suspect]
     Indication: MULTIPLE MYELOMA
     Dosage: 25 MG, 1 IN 1 D, ORAL; X21 DAYS EVERY 28 DAYS, ORAL
     Route: 048
     Dates: start: 20070920, end: 20071006
  2. REVLIMID [Suspect]
     Indication: MULTIPLE MYELOMA
     Dosage: 25 MG, 1 IN 1 D, ORAL; X21 DAYS EVERY 28 DAYS, ORAL
     Route: 048
     Dates: start: 20071222
  3. DEXAMETHASONE TAB [Concomitant]

REACTIONS (3)
  - LUNG ABSCESS [None]
  - RASH [None]
  - THROMBOSIS [None]
